FAERS Safety Report 25501345 (Version 4)
Quarter: 2025Q3

REPORT INFORMATION
  Report Type: Spontaneous
  Country: US (occurrence: US)
  Receive Date: 20250701
  Receipt Date: 20250908
  Transmission Date: 20251021
  Serious: No
  Sender: SANOFI AVENTIS
  Company Number: US-SA-2025SA186053

PATIENT
  Age: 73 Year
  Sex: Female

DRUGS (2)
  1. KEVZARA [Suspect]
     Active Substance: SARILUMAB
     Indication: Rheumatoid arthritis
     Dosage: 200 MG, QOW
     Route: 058
     Dates: start: 202506, end: 202506
  2. KEVZARA [Suspect]
     Active Substance: SARILUMAB
     Dosage: 200 MG, QOW
     Route: 058
     Dates: start: 2025, end: 2025

REACTIONS (9)
  - Pyrexia [Unknown]
  - Joint swelling [Unknown]
  - Injection site rash [Unknown]
  - Injection site erythema [Unknown]
  - Injection site discolouration [Unknown]
  - Fungal infection [Recovered/Resolved]
  - Cellulitis [Recovered/Resolved]
  - Surgery [Unknown]
  - Product dose omission in error [Unknown]

NARRATIVE: CASE EVENT DATE: 20250101
